FAERS Safety Report 15644333 (Version 1)
Quarter: 2018Q4

REPORT INFORMATION
  Report Type: Spontaneous
  Country: US (occurrence: US)
  Receive Date: 20181120
  Receipt Date: 20181120
  Transmission Date: 20190205
  Serious: Yes (Disabling)
  Sender: FDA-Public Use
  Company Number: None

PATIENT
  Age: 89 Year
  Sex: Male
  Weight: 61.69 kg

DRUGS (8)
  1. PLAVIX [Concomitant]
     Active Substance: CLOPIDOGREL BISULFATE
  2. REGADENOSON [Suspect]
     Active Substance: REGADENOSON
  3. ASA [Concomitant]
     Active Substance: ASPIRIN
  4. GINGER. [Concomitant]
     Active Substance: GINGER
  5. METOPROLOL. [Concomitant]
     Active Substance: METOPROLOL
  6. CURCUMIN [Concomitant]
     Active Substance: CURCUMIN
  7. GARLIC. [Concomitant]
     Active Substance: GARLIC
  8. LIPITOR [Concomitant]
     Active Substance: ATORVASTATIN CALCIUM

REACTIONS (5)
  - Burning sensation [None]
  - Anorectal discomfort [None]
  - Gastrointestinal disorder [None]
  - Diarrhoea [None]
  - Cardiac discomfort [None]

NARRATIVE: CASE EVENT DATE: 20181119
